FAERS Safety Report 4369662-1 (Version None)
Quarter: 2004Q2

REPORT INFORMATION
  Report Type: 
  Country: None (occurrence: None)
  Receive Date: 20040527
  Receipt Date: 20040517
  Transmission Date: 20050107
  Serious: Yes (Other)
  Sender: FDA-Public Use
  Company Number: FR-SHR-04-021299

PATIENT
  Age: 45 Year
  Sex: Female

DRUGS (2)
  1. MIRENA [Suspect]
     Dosage: SEE IMAGE
     Route: 015
     Dates: start: 19981223, end: 20030909
  2. MIRENA [Suspect]
     Dosage: SEE IMAGE
     Route: 015
     Dates: start: 20031212

REACTIONS (1)
  - BREAST CANCER FEMALE [None]
